FAERS Safety Report 16656270 (Version 1)
Quarter: 2019Q3

REPORT INFORMATION
  Report Type: Spontaneous
  Country: CH (occurrence: CH)
  Receive Date: 20190801
  Receipt Date: 20190801
  Transmission Date: 20191004
  Serious: Yes (Hospitalization, Other)
  Sender: FDA-Public Use
  Company Number: CH-MYLANLABS-2019M1069789

PATIENT
  Age: 19 Year
  Sex: Male
  Weight: 79.9 kg

DRUGS (3)
  1. NOZINAN                            /00038602/ [Interacting]
     Active Substance: LEVOMEPROMAZINE MALEATE
     Indication: SCHIZOPHRENIA
     Dosage: TERAPIA IN USO DA CIRCA 1 SETTIMANA
     Route: 048
     Dates: start: 201906, end: 20190701
  2. LEPONEX [Interacting]
     Active Substance: CLOZAPINE
     Dosage: 300 MILLIGRAM, QD
     Route: 048
     Dates: start: 201907
  3. LEPONEX [Suspect]
     Active Substance: CLOZAPINE
     Indication: SCHIZOPHRENIA
     Dosage: TERAPIA IN USO DA CIRCA 4 MESI; DURANTE IL RICOVERO VIENE RIDOTTO IL DOSAGGIO A 300 MG/DIE
     Route: 048
     Dates: start: 201903

REACTIONS (11)
  - Antipsychotic drug level above therapeutic [Unknown]
  - Tremor [Recovering/Resolving]
  - Pyrexia [Recovering/Resolving]
  - Pain in extremity [Recovered/Resolved]
  - Blood pressure increased [Recovering/Resolving]
  - Tachycardia [Recovering/Resolving]
  - Drug interaction [Unknown]
  - Muscular weakness [Recovering/Resolving]
  - Altered state of consciousness [Recovered/Resolved]
  - Rhabdomyolysis [Unknown]
  - Neuroleptic malignant syndrome [Recovering/Resolving]

NARRATIVE: CASE EVENT DATE: 2019
